FAERS Safety Report 18836305 (Version 1)
Quarter: 2021Q1

REPORT INFORMATION
  Report Type: Spontaneous
  Country: US (occurrence: US)
  Receive Date: 20210203
  Receipt Date: 20210203
  Transmission Date: 20210419
  Serious: No
  Sender: FDA-Public Use
  Company Number: US-ALLERGAN-2009282US

PATIENT
  Sex: Female

DRUGS (1)
  1. BOTOX [Suspect]
     Active Substance: ONABOTULINUMTOXINA
     Indication: MIGRAINE
     Dosage: UNK, SINGLE
     Dates: start: 20200219, end: 20200219

REACTIONS (6)
  - Feeling cold [Unknown]
  - Headache [Unknown]
  - Neck pain [Unknown]
  - Migraine [Unknown]
  - Head discomfort [Unknown]
  - Discomfort [Unknown]

NARRATIVE: CASE EVENT DATE: 202002
